FAERS Safety Report 7211081-4 (Version None)
Quarter: 2011Q1

REPORT INFORMATION
  Report Type: 
  Country: None (occurrence: None)
  Receive Date: 20110105
  Receipt Date: 20101229
  Transmission Date: 20110831
  Serious: Yes (Hospitalization, Other)
  Sender: FDA-Public Use
  Company Number: PHHO2010KR19818

PATIENT
  Sex: Male
  Weight: 62 kg

DRUGS (2)
  1. AMN107 [Suspect]
     Indication: GASTROINTESTINAL STROMAL TUMOUR
     Dosage: 2 TABLETS DAILY
     Route: 048
     Dates: start: 20090106, end: 20090202
  2. AMN107 [Suspect]
     Dosage: 1 TABLET DAILY
     Route: 048
     Dates: start: 20090203, end: 20090214

REACTIONS (2)
  - ANGINA PECTORIS [None]
  - CHEST DISCOMFORT [None]
